FAERS Safety Report 8495364-6 (Version None)
Quarter: 2012Q3

REPORT INFORMATION
  Report Type: 
  Country: None (occurrence: None)
  Receive Date: 20120702
  Receipt Date: 20120702
  Transmission Date: 20120928
  Serious: Yes (Other)
  Sender: FDA-Public Use
  Company Number: None

PATIENT
  Age: 24 Year
  Sex: Male
  Weight: 58.514 kg

DRUGS (2)
  1. SINGULAIR [Suspect]
     Indication: HYPERSENSITIVITY
     Dosage: DAILY, PRN
     Dates: start: 20080101, end: 20120525
  2. SINGULAIR [Suspect]
     Indication: HYPERSENSITIVITY
     Dosage: DAILY, PRN
     Dates: start: 20120526, end: 20120605

REACTIONS (6)
  - DRUG INTERACTION [None]
  - CONFUSIONAL STATE [None]
  - ANXIETY [None]
  - VISUAL IMPAIRMENT [None]
  - ABNORMAL DREAMS [None]
  - HALLUCINATION [None]
